FAERS Safety Report 22538811 (Version 1)
Quarter: 2023Q2

REPORT INFORMATION
  Report Type: Spontaneous
  Country: ES (occurrence: ES)
  Receive Date: 20230609
  Receipt Date: 20230609
  Transmission Date: 20230722
  Serious: Yes (Other)
  Sender: FDA-Public Use
  Company Number: None

PATIENT
  Age: 24 Year
  Sex: Male
  Weight: 84 kg

DRUGS (1)
  1. DUTASTERIDE [Suspect]
     Active Substance: DUTASTERIDE
     Indication: Androgenetic alopecia
     Dosage: THREE CAPSULES PER WEEK, IN THE FOLLOWING DAYS: MONDAYS, WEDNESDAYS AND FRIDAYS, DUTASTERIDA (2893A)
     Route: 065
     Dates: start: 202101, end: 202112

REACTIONS (3)
  - Gynaecomastia [Not Recovered/Not Resolved]
  - Libido disorder [Not Recovered/Not Resolved]
  - Genital hypoaesthesia [Not Recovered/Not Resolved]

NARRATIVE: CASE EVENT DATE: 20211201
